FAERS Safety Report 11039377 (Version 2)
Quarter: 2015Q2

REPORT INFORMATION
  Report Type: Report from Study
  Country: US (occurrence: US)
  Receive Date: 20150416
  Receipt Date: 20150527
  Transmission Date: 20150821
  Serious: Yes (Other)
  Sender: FDA-Public Use
  Company Number: US-BAYER-2015-026351

PATIENT
  Age: 32 Year
  Sex: Female

DRUGS (2)
  1. STIVARGA [Suspect]
     Active Substance: REGORAFENIB
     Indication: GASTROINTESTINAL STROMAL TUMOUR
     Dosage: 80 MG, DAILY
     Route: 048
     Dates: start: 201402
  2. STIVARGA [Suspect]
     Active Substance: REGORAFENIB
     Indication: GASTROINTESTINAL STROMAL TUMOUR
     Dosage: 80 MG, DAILY
     Route: 048
     Dates: start: 20150213

REACTIONS (10)
  - Rash [None]
  - Vulvovaginal erythema [None]
  - Myalgia [None]
  - Stomatitis [None]
  - Arthralgia [None]
  - Vulvovaginal dryness [None]
  - Urinary tract infection [None]
  - Abdominal pain [None]
  - Vaginal ulceration [None]
  - Palmar-plantar erythrodysaesthesia syndrome [None]

NARRATIVE: CASE EVENT DATE: 201502
